FAERS Safety Report 6143830-0 (Version None)
Quarter: 2009Q2

REPORT INFORMATION
  Report Type: 
  Country: None (occurrence: None)
  Receive Date: 20090403
  Receipt Date: 20090401
  Transmission Date: 20091009
  Serious: Yes (Death, Hospitalization)
  Sender: FDA-Public Use
  Company Number: PHHY2009GB08879

PATIENT
  Sex: Male

DRUGS (3)
  1. CLOZARIL [Suspect]
     Indication: SCHIZOPHRENIA
     Dosage: UNK
     Dates: start: 19900426
  2. CLOZARIL [Suspect]
     Dosage: UNK
     Dates: start: 20090302
  3. CLOZARIL [Suspect]
     Dosage: 250 MG PM DOSE
     Dates: start: 20090305

REACTIONS (9)
  - CARDIAC FAILURE CONGESTIVE [None]
  - COUGH [None]
  - LOWER RESPIRATORY TRACT INFECTION [None]
  - OXYGEN SATURATION DECREASED [None]
  - PNEUMONIA [None]
  - RESPIRATORY FAILURE [None]
  - SEDATION [None]
  - SLEEP APNOEA SYNDROME [None]
  - WEIGHT INCREASED [None]
